APPROVED DRUG PRODUCT: DOCETAXEL
Active Ingredient: DOCETAXEL
Strength: 20MG/0.5ML (40MG/ML)
Dosage Form/Route: INJECTABLE;INJECTION
Application: N201195 | Product #001
Applicant: ACCORD HEALTHCARE INC
Approved: Jun 8, 2011 | RLD: Yes | RS: No | Type: DISCN